FAERS Safety Report 5763510-0 (Version None)
Quarter: 2008Q2

REPORT INFORMATION
  Report Type: 
  Country: None (occurrence: None)
  Receive Date: 20080610
  Receipt Date: 20080605
  Transmission Date: 20081010
  Serious: Yes (Other)
  Sender: FDA-Public Use
  Company Number: US-RANBAXY-2008US-15364

PATIENT

DRUGS (3)
  1. ISOTRETINOIN [Suspect]
     Indication: ACNE
     Dosage: 40 MG, QD
     Dates: start: 20060301, end: 20080501
  2. ISOTRETINOIN [Suspect]
     Dosage: 30 MG, BID
     Dates: start: 20080429
  3. ADVIL [Suspect]
     Indication: DRUG USE FOR UNKNOWN INDICATION

REACTIONS (7)
  - AMNESIA [None]
  - ASTHMA [None]
  - CRYING [None]
  - HEADACHE [None]
  - INFLUENZA [None]
  - NAUSEA [None]
  - SUICIDAL IDEATION [None]
